FAERS Safety Report 5701384-4 (Version None)
Quarter: 2008Q2

REPORT INFORMATION
  Report Type: 
  Country: None (occurrence: None)
  Receive Date: 20080410
  Receipt Date: 20080404
  Transmission Date: 20081010
  Serious: No
  Sender: FDA-Public Use
  Company Number: KR-BAXTER-2008BH002699

PATIENT
  Sex: Male
  Weight: 28 kg

DRUGS (2)
  1. RECOMBINATE [Suspect]
     Indication: HAEMARTHROSIS
     Dosage: DOSE UNIT:UNKNOWN
     Route: 042
     Dates: start: 20040801
  2. RECOMBINATE [Suspect]
     Dosage: DOSE UNIT:UNKNOWN
     Route: 042
     Dates: start: 20040801

REACTIONS (2)
  - HEPATITIS B DNA ASSAY POSITIVE [None]
  - HEPATITIS B SURFACE ANTIGEN POSITIVE [None]
